FAERS Safety Report 18062126 (Version 6)
Quarter: 2021Q2

REPORT INFORMATION
  Report Type: Spontaneous
  Country: US (occurrence: US)
  Receive Date: 20200723
  Receipt Date: 20210514
  Transmission Date: 20210717
  Serious: No
  Sender: FDA-Public Use
  Company Number: US-PFIZER INC-2020281124

PATIENT
  Age: 27 Year
  Sex: Female

DRUGS (2)
  1. IBRANCE [Suspect]
     Active Substance: PALBOCICLIB
     Dosage: 125 MG, CYCLIC
     Dates: start: 20200612
  2. IBRANCE [Suspect]
     Active Substance: PALBOCICLIB
     Dosage: 125 MG, CYCLIC
     Dates: start: 20200608

REACTIONS (6)
  - Hot flush [Recovered/Resolved]
  - Nausea [Unknown]
  - Contusion [Unknown]
  - Fatigue [Unknown]
  - Constipation [Recovered/Resolved]
  - Energy increased [Unknown]

NARRATIVE: CASE EVENT DATE: 2020
